FAERS Safety Report 5869091-5 (Version None)
Quarter: 2008Q3

REPORT INFORMATION
  Report Type: 
  Country: None (occurrence: None)
  Receive Date: 20080903
  Receipt Date: 20080829
  Transmission Date: 20090109
  Serious: Yes (Disabling)
  Sender: FDA-Public Use
  Company Number: DE-AVENTIS-200812190DE

PATIENT
  Age: 28 Year
  Sex: Female
  Weight: 110 kg

DRUGS (6)
  1. APIDRA [Suspect]
     Dosage: DOSE: 40-30-40
     Route: 058
     Dates: start: 20070801, end: 20080812
  2. ACTRAPID [Concomitant]
     Dosage: DOSE: NOT REPORTED
     Route: 058
     Dates: end: 20070801
  3. BENAZEPRIL HYDROCHLORIDE [Concomitant]
     Route: 048
  4. BEZAFIBRAT 400 [Concomitant]
     Route: 048
  5. PROTAPHAN                          /01322201/ [Concomitant]
     Dosage: DOSE: 0-0-0-50
     Route: 058
  6. METFORMIN HCL [Concomitant]
     Dosage: DOSE: 1-0-1
     Route: 048

REACTIONS (3)
  - AMENORRHOEA [None]
  - HYPERTRICHOSIS [None]
  - WEIGHT INCREASED [None]
